FAERS Safety Report 21059519 (Version 7)
Quarter: 2022Q3

REPORT INFORMATION
  Report Type: Report from Study
  Country: JP (occurrence: None)
  Receive Date: 20220708
  Receipt Date: 20220816
  Transmission Date: 20221027
  Serious: Yes (Hospitalization)
  Sender: FDA-Public Use
  Company Number: 2022A246690

PATIENT
  Age: 69 Year
  Sex: Male
  Weight: 64 kg

DRUGS (17)
  1. DURVALUMAB [Suspect]
     Active Substance: DURVALUMAB
     Indication: Non-small cell lung cancer
     Dosage: 594 MG
     Route: 042
     Dates: start: 20220616, end: 20220616
  2. CARBOPLATIN [Suspect]
     Active Substance: CARBOPLATIN
     Indication: Non-small cell lung cancer
     Dosage: 201 MG
     Route: 042
     Dates: start: 20220407, end: 20220407
  3. CARBOPLATIN [Suspect]
     Active Substance: CARBOPLATIN
     Indication: Non-small cell lung cancer
     Dosage: 201 MG
     Route: 042
     Dates: start: 20220512, end: 20220512
  4. PACLITAXEL [Suspect]
     Active Substance: PACLITAXEL
     Indication: Non-small cell lung cancer
     Dosage: 73 MG
     Route: 042
     Dates: start: 20220407, end: 20220407
  5. PACLITAXEL [Suspect]
     Active Substance: PACLITAXEL
     Indication: Non-small cell lung cancer
     Dosage: 73 MG
     Route: 042
     Dates: start: 20220512, end: 20220512
  6. HYDROMORPHONE HYDROCHLORIDE [Concomitant]
     Active Substance: HYDROMORPHONE HYDROCHLORIDE
     Dosage: AS NEEDED
     Route: 048
     Dates: start: 20220506
  7. MAGNESIUM OXIDE [Concomitant]
     Active Substance: MAGNESIUM OXIDE
     Indication: Prophylaxis
     Route: 048
     Dates: start: 20220531
  8. PREDNISOLONE [Concomitant]
     Active Substance: PREDNISOLONE
     Dosage: 3 TIMES PER DAY
     Route: 048
  9. SIMETICONE/SODIUM ALGINATE [Concomitant]
     Indication: Adverse event
     Dosage: 4 TIMES PER DAY
     Route: 048
     Dates: start: 20220428
  10. SIMETICONE/SODIUM ALGINATE [Concomitant]
     Indication: Adverse event
     Dosage: 4 TIMES PER DAY
     Route: 048
     Dates: start: 20220428
  11. VONOPRAZAN FUMARATE [Concomitant]
     Active Substance: VONOPRAZAN FUMARATE
     Indication: Prophylaxis
     Route: 048
     Dates: start: 20220428
  12. VONOPRAZAN FUMARATE [Concomitant]
     Active Substance: VONOPRAZAN FUMARATE
     Indication: Prophylaxis
     Route: 048
     Dates: start: 20220428
  13. DIMETHYL ISOPROPYLAZULENE [Concomitant]
     Indication: Adverse event
     Route: 065
     Dates: start: 20220510
  14. COMIRNATY [Concomitant]
     Active Substance: TOZINAMERAN
     Indication: Prophylaxis
     Route: 058
     Dates: start: 20210527
  15. COMIRNATY [Concomitant]
     Active Substance: TOZINAMERAN
     Indication: Prophylaxis
     Route: 058
     Dates: start: 20210617
  16. SARS-COV-2 [Concomitant]
     Active Substance: SARS-COV-2
     Indication: Prophylaxis
     Route: 058
     Dates: start: 20220210
  17. DIMETHYL ISOPROPYLAZULENE [Concomitant]
     Indication: Adverse event
     Dosage: AS NEEDED
     Route: 061
     Dates: start: 20220510

REACTIONS (1)
  - Hepatic function abnormal [Recovered/Resolved]

NARRATIVE: CASE EVENT DATE: 20220630
